FAERS Safety Report 7707186-1 (Version None)
Quarter: 2011Q3

REPORT INFORMATION
  Report Type: 
  Country: None (occurrence: None)
  Receive Date: 20110824
  Receipt Date: 20110209
  Transmission Date: 20111222
  Serious: No
  Sender: FDA-Public Use
  Company Number: US-ALLERGAN-1101986US

PATIENT
  Age: 70 Year
  Sex: Female

DRUGS (1)
  1. OZURDEX [Suspect]
     Indication: PRODUCT USED FOR UNKNOWN INDICATION

REACTIONS (1)
  - DEVICE DIFFICULT TO USE [None]
